FAERS Safety Report 4991410-2 (Version None)
Quarter: 2006Q2

REPORT INFORMATION
  Report Type: 
  Country: None (occurrence: None)
  Receive Date: 20060502
  Receipt Date: 20060419
  Transmission Date: 20061013
  Serious: Yes (Other)
  Sender: FDA-Public Use
  Company Number: HQWYE876619APR06

PATIENT
  Sex: Female

DRUGS (3)
  1. EFFEXOR [Suspect]
     Dosage: 75 MG 1X PER 1 DAY ORAL
     Route: 048
  2. AMPHETAMINE SULFATE [Suspect]
     Dates: start: 20040315
  3. METHADONE HCL [Suspect]

REACTIONS (9)
  - AGGRESSION [None]
  - AKATHISIA [None]
  - DRUG WITHDRAWAL SYNDROME [None]
  - FEELING ABNORMAL [None]
  - HEADACHE [None]
  - MANIA [None]
  - PSYCHOTIC DISORDER [None]
  - RESTLESSNESS [None]
  - SUICIDAL IDEATION [None]
